FAERS Safety Report 25078570 (Version 1)
Quarter: 2025Q1

REPORT INFORMATION
  Report Type: Spontaneous
  Country: US (occurrence: None)
  Receive Date: 20250313
  Receipt Date: 20250313
  Transmission Date: 20250408
  Serious: Yes (Disabling)
  Sender: FDA-CTU
  Company Number: None

PATIENT

DRUGS (1)
  1. WEGOVY [Suspect]
     Active Substance: SEMAGLUTIDE
     Indication: Weight decreased
     Dates: start: 20241201

REACTIONS (2)
  - Nocturia [None]
  - Urinary retention [None]

NARRATIVE: CASE EVENT DATE: 20250210
